FAERS Safety Report 9196524 (Version 2)
Quarter: 2013Q2

REPORT INFORMATION
  Report Type: Spontaneous
  Country: US (occurrence: US)
  Receive Date: 20130328
  Receipt Date: 20130417
  Transmission Date: 20140414
  Serious: No
  Sender: FDA-Public Use
  Company Number: US-PFIZER INC-2013096067

PATIENT
  Sex: 0

DRUGS (2)
  1. GLIBENCLAMIDE [Suspect]
     Dosage: UNK
  2. NOVOLIN 70/30 [Suspect]
     Dosage: UNK
     Dates: end: 20130118

REACTIONS (2)
  - Blood glucose fluctuation [Unknown]
  - Glycosylated haemoglobin increased [Unknown]
